FAERS Safety Report 4287787-6 (Version None)
Quarter: 2004Q1

REPORT INFORMATION
  Report Type: 
  Country: None (occurrence: None)
  Receive Date: 20040209
  Receipt Date: 20030924
  Transmission Date: 20041129
  Serious: No
  Sender: FDA-Public Use
  Company Number: US-GLAXOSMITHKLINE-A0427351A

PATIENT
  Age: 13 Year
  Sex: Male

DRUGS (2)
  1. PAXIL [Suspect]
     Dosage: 37.5MG PER DAY
     Route: 048
  2. MINOCYCLINE HCL [Concomitant]

REACTIONS (3)
  - AGGRESSION [None]
  - ANXIETY [None]
  - RESTLESSNESS [None]
